FAERS Safety Report 5233758-2 (Version None)
Quarter: 2007Q1

REPORT INFORMATION
  Report Type: 
  Country: None (occurrence: None)
  Receive Date: 20070208
  Receipt Date: 20070131
  Transmission Date: 20070707
  Serious: Yes (Other)
  Sender: FDA-Public Use
  Company Number: US-GLAXOSMITHKLINE-A0637536A

PATIENT
  Age: 49 Year
  Sex: Male

DRUGS (2)
  1. CONTAC-D COLD [Suspect]
     Indication: NASOPHARYNGITIS
     Dosage: 1TAB PER DAY
     Route: 048
     Dates: start: 20070128
  2. ANACIN [Suspect]

REACTIONS (1)
  - RECTAL HAEMORRHAGE [None]
